FAERS Safety Report 12648129 (Version 1)
Quarter: 2016Q3

REPORT INFORMATION
  Report Type: Other
  Country: GB (occurrence: GB)
  Receive Date: 20160812
  Receipt Date: 20160812
  Transmission Date: 20161109
  Serious: Yes (Other)
  Sender: FDA-Public Use
  Company Number: GB-CELLTRION INC.-2016GB006962

PATIENT

DRUGS (4)
  1. INFLIXIMAB [Suspect]
     Active Substance: INFLIXIMAB
     Indication: JUVENILE IDIOPATHIC ARTHRITIS
     Dosage: 120 MG, UNK
     Route: 042
     Dates: start: 20160704, end: 20160704
  2. HYDROCORTISONE. [Concomitant]
     Active Substance: HYDROCORTISONE
     Route: 042
  3. CHLORPHENAMINE [Concomitant]
     Active Substance: CHLORPHENIRAMINE MALEATE
     Route: 042
  4. METHOTREXATE. [Concomitant]
     Active Substance: METHOTREXATE
     Route: 048

REACTIONS (2)
  - Anaphylactic reaction [Recovered/Resolved]
  - Off label use [Unknown]

NARRATIVE: CASE EVENT DATE: 20160704
